FAERS Safety Report 7964549-7 (Version None)
Quarter: 2011Q4

REPORT INFORMATION
  Report Type: 
  Country: None (occurrence: None)
  Receive Date: 20111208
  Receipt Date: 20111124
  Transmission Date: 20120403
  Serious: Yes (Other)
  Sender: FDA-Public Use
  Company Number: PHHY2011FR103455

PATIENT
  Age: 56 Year
  Sex: Female

DRUGS (2)
  1. FEMARA [Suspect]
     Dosage: 2.5 MG, QD
     Route: 048
  2. FEMARA [Suspect]
     Indication: BREAST CANCER
     Dosage: 2.5 MG, QD
     Route: 048
     Dates: start: 20100201, end: 20110701

REACTIONS (5)
  - MULTIPLE SCLEROSIS [None]
  - DIPLOPIA [None]
  - IIIRD NERVE PARALYSIS [None]
  - STRABISMUS [None]
  - RETINAL VASCULAR OCCLUSION [None]
